FAERS Safety Report 23522912 (Version 1)
Quarter: 2024Q1

REPORT INFORMATION
  Report Type: 
  Country: None (occurrence: None)
  Receive Date: 20240214
  Receipt Date: 20240214
  Transmission Date: 20240410
  Serious: No
  Sender: FDA-Public Use
  Company Number: CA-002147023-PHHY2018CA164446

PATIENT

DRUGS (14)
  1. CODEINE PHOSPHATE [Suspect]
     Active Substance: CODEINE PHOSPHATE
     Dosage: UNK
  2. XOLAIR [Suspect]
     Active Substance: OMALIZUMAB
     Dates: start: 20181019
  3. XOLAIR [Suspect]
     Active Substance: OMALIZUMAB
     Dates: start: 20181224
  4. XOLAIR [Suspect]
     Active Substance: OMALIZUMAB
     Dates: start: 20190725
  5. XOLAIR [Suspect]
     Active Substance: OMALIZUMAB
     Dates: start: 20190917
  6. XOLAIR [Suspect]
     Active Substance: OMALIZUMAB
     Dates: start: 20200305
  7. XOLAIR [Suspect]
     Active Substance: OMALIZUMAB
  8. AMOXICILLIN [Suspect]
     Active Substance: AMOXICILLIN
     Dosage: UNK
  9. BENADRYL [Concomitant]
     Active Substance: DIPHENHYDRAMINE HYDROCHLORIDE
     Dosage: 1 DF, PRN
     Dates: start: 2016
  10. ZANTAC [Concomitant]
     Active Substance: RANITIDINE HYDROCHLORIDE
     Dosage: 1 DF, PRN
     Dates: start: 20180710
  11. IRON [Concomitant]
     Active Substance: IRON
     Dosage: 1 DF, QD
  12. PANTOPRAZOLE SODIUM [Concomitant]
     Active Substance: PANTOPRAZOLE SODIUM
     Dosage: 1 DF, QD
     Dates: start: 201903
  13. RUPATADINE FUMARATE [Concomitant]
     Active Substance: RUPATADINE FUMARATE
     Dosage: 1 DF, PRN
     Dates: start: 20180710, end: 201810
  14. CONCERTA [Concomitant]
     Active Substance: METHYLPHENIDATE HYDROCHLORIDE
     Dates: start: 20230126

REACTIONS (45)
  - Nervous system disorder [None]
  - Cystitis [None]
  - Seizure [None]
  - Intentional self-injury [None]
  - Angioedema [None]
  - Cellulitis [None]
  - Thrombosis [None]
  - Anaphylactic reaction [None]
  - Pain [None]
  - Feeling abnormal [None]
  - Swelling face [None]
  - Temperature intolerance [None]
  - Skin discolouration [None]
  - Scratch [None]
  - Attention deficit hyperactivity disorder [None]
  - Anxiety [None]
  - Malaise [None]
  - Body temperature decreased [None]
  - Hypophagia [None]
  - Rash macular [None]
  - Epistaxis [None]
  - Dizziness [None]
  - Nasal obstruction [None]
  - Skin haemorrhage [None]
  - Swelling [None]
  - Vascular pain [None]
  - Discomfort [None]
  - Haemoptysis [None]
  - Impetigo [None]
  - Skin lesion [None]
  - Rhinorrhoea [None]
  - Cough [None]
  - Chills [None]
  - Blister [None]
  - Stress [None]
  - Wound [None]
  - Poor quality sleep [None]
  - Obsessive-compulsive disorder [None]
  - Urticaria [None]
  - Pruritus [None]
  - Pyrexia [None]
  - Drug hypersensitivity [None]
  - Therapeutic response shortened [None]
  - Inappropriate schedule of product administration [None]
  - Product dose omission issue [None]

NARRATIVE: CASE EVENT DATE: 20181019
